FAERS Safety Report 18314403 (Version 4)
Quarter: 2021Q3

REPORT INFORMATION
  Report Type: Spontaneous
  Country: JP (occurrence: JP)
  Receive Date: 20200925
  Receipt Date: 20210729
  Transmission Date: 20211014
  Serious: Yes (Hospitalization, Other)
  Sender: FDA-Public Use
  Company Number: NVSC2020JP259376

PATIENT
  Age: 62 Year
  Sex: Male

DRUGS (18)
  1. GRACEPTOR [Suspect]
     Active Substance: TACROLIMUS
     Dosage: 10 MG
     Route: 065
  2. GRACEPTOR [Suspect]
     Active Substance: TACROLIMUS
     Indication: PRODUCT USED FOR UNKNOWN INDICATION
     Dosage: 12 MG
     Route: 065
  3. METHYLPREDNISOLONE. [Suspect]
     Active Substance: METHYLPREDNISOLONE
     Indication: IMMUNOSUPPRESSANT DRUG THERAPY
     Dosage: 2 MG
     Route: 048
     Dates: start: 20170313
  4. METHYLPREDNISOLONE. [Suspect]
     Active Substance: METHYLPREDNISOLONE
     Indication: PROPHYLAXIS AGAINST TRANSPLANT REJECTION
     Dosage: 2 MG
     Route: 048
  5. MYCOPHENOLATE MOFETIL. [Suspect]
     Active Substance: MYCOPHENOLATE MOFETIL
     Indication: IMMUNOSUPPRESSANT DRUG THERAPY
     Dosage: INDUCTION THERAPY 2 WEEKS PRIOR TO THE OPERATION
     Route: 065
  6. CYCLOSPORINE. [Suspect]
     Active Substance: CYCLOSPORINE
     Indication: PROPHYLAXIS AGAINST TRANSPLANT REJECTION
  7. GRACEPTOR [Suspect]
     Active Substance: TACROLIMUS
     Dosage: 12 MG
     Route: 065
  8. EVEROLIMUS. [Suspect]
     Active Substance: EVEROLIMUS
     Indication: PROPHYLAXIS AGAINST TRANSPLANT REJECTION
  9. GRACEPTOR [Suspect]
     Active Substance: TACROLIMUS
     Dosage: 11 MG
     Route: 065
  10. BASILIXIMAB [Suspect]
     Active Substance: BASILIXIMAB
     Indication: IMMUNOSUPPRESSANT DRUG THERAPY
     Dosage: 20 MG
     Route: 042
     Dates: start: 20170221, end: 20170221
  11. EVEROLIMUS. [Suspect]
     Active Substance: EVEROLIMUS
     Indication: IMMUNOSUPPRESSANT DRUG THERAPY
     Dosage: 1.5 MG
     Route: 048
     Dates: start: 20170524
  12. CYCLOSPORINE. [Suspect]
     Active Substance: CYCLOSPORINE
     Indication: IMMUNOSUPPRESSANT DRUG THERAPY
     Dosage: 300 MG
     Route: 048
     Dates: start: 20170906, end: 20170928
  13. RITUXIMAB. [Suspect]
     Active Substance: RITUXIMAB
     Indication: IMMUNOSUPPRESSANT DRUG THERAPY
     Dosage: INDUCTION THERAPY 2 WEEKS PRIOR TO THE OPERATION
     Route: 065
  14. GRACEPTOR [Suspect]
     Active Substance: TACROLIMUS
     Indication: IMMUNOSUPPRESSANT DRUG THERAPY
     Dosage: INDUCTION THERAPY 2 WEEKS PRIOR TO THE OPERATION
     Route: 065
  15. BASILIXIMAB [Suspect]
     Active Substance: BASILIXIMAB
     Indication: PROPHYLAXIS AGAINST TRANSPLANT REJECTION
  16. GRACEPTOR [Suspect]
     Active Substance: TACROLIMUS
     Dosage: 8 MG
     Route: 065
  17. GRACEPTOR [Suspect]
     Active Substance: TACROLIMUS
     Dosage: 7 MG
     Route: 065
  18. GRACEPTOR [Suspect]
     Active Substance: TACROLIMUS
     Dosage: 5 MG
     Route: 065

REACTIONS (4)
  - Parvovirus B19 infection [Recovering/Resolving]
  - Thrombotic microangiopathy [Recovering/Resolving]
  - Aplasia pure red cell [Recovering/Resolving]
  - Renal impairment [Unknown]

NARRATIVE: CASE EVENT DATE: 20170421
